FAERS Safety Report 21509434 (Version 1)
Quarter: 2022Q4

REPORT INFORMATION
  Report Type: Spontaneous
  Country: US (occurrence: US)
  Receive Date: 20221026
  Receipt Date: 20221026
  Transmission Date: 20230113
  Serious: No
  Sender: FDA-Public Use
  Company Number: US-MIRM-000527

PATIENT
  Sex: Female

DRUGS (15)
  1. LIVMARLI [Suspect]
     Active Substance: MARALIXIBAT CHLORIDE
     Indication: Alagille syndrome
     Route: 048
     Dates: start: 20220329
  2. CHOLESTYRAMINE LIGHT [Concomitant]
     Active Substance: CHOLESTYRAMINE
     Indication: Product used for unknown indication
  3. Heparin (porcine) in NaCL [Concomitant]
     Indication: Product used for unknown indication
  4. AFRIN NO DRIP ORIGINAL PUMP MIST [Concomitant]
     Active Substance: OXYMETAZOLINE HYDROCHLORIDE
     Indication: Product used for unknown indication
  5. DRISDOL [Concomitant]
     Active Substance: ERGOCALCIFEROL
     Indication: Product used for unknown indication
  6. Benadryl allergy childrens [Concomitant]
     Indication: Product used for unknown indication
  7. NEXIUM [Concomitant]
     Active Substance: ESOMEPRAZOLE MAGNESIUM
     Indication: Product used for unknown indication
  8. CHILDRENS TYLENOL [Concomitant]
     Active Substance: ACETAMINOPHEN
     Indication: Product used for unknown indication
  9. Cetirizine HCL allergy child [Concomitant]
     Indication: Product used for unknown indication
  10. TPN ELECTROLYTES [Concomitant]
     Active Substance: CALCIUM CHLORIDE\MAGNESIUM CHLORIDE\POTASSIUM CHLORIDE\SODIUM ACETATE ANHYDROUS\SODIUM CHLORIDE
     Indication: Product used for unknown indication
  11. ZOFRAN [Concomitant]
     Active Substance: ONDANSETRON HYDROCHLORIDE
     Indication: Product used for unknown indication
  12. CLINOLIPID [Concomitant]
     Active Substance: OLIVE OIL\SOYBEAN OIL
     Indication: Product used for unknown indication
  13. CHILDRENS CHEWABLE ASPIRIN [Concomitant]
     Active Substance: ASPIRIN
     Indication: Product used for unknown indication
  14. MINERALS\VITAMINS [Concomitant]
     Active Substance: MINERALS\VITAMINS
     Indication: Product used for unknown indication
  15. Ursodiol+SyrSpend SF [Concomitant]
     Indication: Product used for unknown indication

REACTIONS (2)
  - Pruritus [Unknown]
  - Weight increased [Unknown]
